FAERS Safety Report 21624482 (Version 2)
Quarter: 2023Q1

REPORT INFORMATION
  Report Type: Spontaneous
  Country: US (occurrence: US)
  Receive Date: 20221121
  Receipt Date: 20230102
  Transmission Date: 20230418
  Serious: Yes (Other)
  Sender: FDA-Public Use
  Company Number: US-BIOGEN-2022BI01169584

PATIENT
  Sex: Female

DRUGS (3)
  1. TECFIDERA [Suspect]
     Active Substance: DIMETHYL FUMARATE
     Indication: Product used for unknown indication
     Dosage: MAINTENANCE DOSE
     Route: 050
     Dates: start: 20190208
  2. METOPROLOL [Suspect]
     Active Substance: METOPROLOL
     Indication: Product used for unknown indication
     Route: 050
  3. MECLIZINE [Suspect]
     Active Substance: MECLIZINE HYDROCHLORIDE
     Indication: Dizziness
     Route: 050

REACTIONS (8)
  - Crohn^s disease [Unknown]
  - Dizziness [Unknown]
  - Cataract [Unknown]
  - Arthritis [Unknown]
  - Glucose tolerance impaired [Unknown]
  - Coagulopathy [Unknown]
  - Fatigue [Unknown]
  - Gait disturbance [Unknown]
